FAERS Safety Report 10787334 (Version 1)
Quarter: 2015Q1

REPORT INFORMATION
  Report Type: Spontaneous
  Country: US (occurrence: US)
  Receive Date: 20150211
  Receipt Date: 20150211
  Transmission Date: 20150721
  Serious: No
  Sender: FDA-Public Use
  Company Number: US-GILEAD-2015-0136319

PATIENT
  Age: 88 Year
  Sex: Female

DRUGS (1)
  1. LETAIRIS [Suspect]
     Active Substance: AMBRISENTAN
     Indication: PRODUCT USED FOR UNKNOWN INDICATION
     Dosage: 5 MG, UNK
     Route: 065
     Dates: start: 20121210

REACTIONS (6)
  - Rhinorrhoea [Unknown]
  - Ear pain [Unknown]
  - Nasal ulcer [Unknown]
  - Cerumen impaction [Unknown]
  - Unevaluable event [Unknown]
  - Peripheral swelling [Unknown]
